FAERS Safety Report 21007671 (Version 1)
Quarter: 2022Q2

REPORT INFORMATION
  Report Type: Report from Study
  Country: CH (occurrence: CH)
  Receive Date: 20220627
  Receipt Date: 20220627
  Transmission Date: 20220721
  Serious: Yes (Hospitalization)
  Sender: FDA-Public Use
  Company Number: CH-ABBVIE-22K-151-4446271-00

PATIENT
  Age: 64 Year

DRUGS (2)
  1. CARBIDOPA\LEVODOPA [Suspect]
     Active Substance: CARBIDOPA\LEVODOPA
     Indication: Parkinson^s disease
     Dosage: MD 1.0ML, CRD 1.6ML/H, CRN 1.0 ML/H, ED 0.5ML, 24H THERAPY
     Route: 050
     Dates: start: 20220607, end: 20220613
  2. CARBIDOPA\LEVODOPA [Suspect]
     Active Substance: CARBIDOPA\LEVODOPA
     Dosage: MD 4.5ML, CRD 1.6ML/H, CRN 1.0ML/H, ED 1.0ML, 24H THERAPY
     Route: 050
     Dates: start: 20220613

REACTIONS (1)
  - Infection [Recovering/Resolving]

NARRATIVE: CASE EVENT DATE: 20220601
